FAERS Safety Report 12049214 (Version 1)
Quarter: 2016Q1

REPORT INFORMATION
  Report Type: Spontaneous
  Country: US (occurrence: None)
  Receive Date: 20160208
  Receipt Date: 20160208
  Transmission Date: 20160526
  Serious: No
  Sender: FDA-Public Use
  Company Number: None

PATIENT
  Age: 64 Year
  Sex: Male

DRUGS (2)
  1. METFORMIN [Suspect]
     Active Substance: METFORMIN HYDROCHLORIDE
  2. LIPITOR [Suspect]
     Active Substance: ATORVASTATIN CALCIUM

REACTIONS (2)
  - Neuropathy peripheral [None]
  - Cerebrovascular accident [None]
